FAERS Safety Report 8167812-2 (Version None)
Quarter: 2012Q1

REPORT INFORMATION
  Report Type: 
  Country: None (occurrence: None)
  Receive Date: 20120227
  Receipt Date: 20120215
  Transmission Date: 20120608
  Serious: Yes (Hospitalization)
  Sender: FDA-Public Use
  Company Number: DE-ROCHE-1041078

PATIENT
  Age: 39 Year
  Sex: Male

DRUGS (5)
  1. LEUCOVORIN CALCIUM [Suspect]
     Indication: COLON CANCER
  2. OXALIPLATIN [Suspect]
     Indication: COLON CANCER
  3. AVASTIN [Suspect]
     Indication: COLON CANCER
  4. FLUOROURACIL [Suspect]
     Indication: COLON CANCER
  5. NOREPINEPHRINE BITARTRATE [Suspect]
     Indication: PRODUCT USED FOR UNKNOWN INDICATION

REACTIONS (3)
  - EXTREMITY NECROSIS [None]
  - SEPTIC SHOCK [None]
  - DEVICE RELATED INFECTION [None]
